FAERS Safety Report 18987054 (Version 2)
Quarter: 2021Q1

REPORT INFORMATION
  Report Type: Other
  Country: US (occurrence: US)
  Receive Date: 20210309
  Receipt Date: 20210331
  Transmission Date: 20210420
  Serious: Yes (Other)
  Sender: FDA-Public Use
  Company Number: US-ROCHE-2782981

PATIENT
  Age: 67 Year
  Sex: Female

DRUGS (6)
  1. RITUXIMAB. [Suspect]
     Active Substance: RITUXIMAB
     Indication: RHEUMATOID ARTHRITIS
     Route: 041
  2. ETANERCEPT [Concomitant]
     Active Substance: ETANERCEPT
  3. METHOTREXATE. [Concomitant]
     Active Substance: METHOTREXATE
  4. INFLIXIMAB [Concomitant]
     Active Substance: INFLIXIMAB
  5. ADALIMUMAB [Concomitant]
     Active Substance: ADALIMUMAB
  6. ABATACEPT [Concomitant]
     Active Substance: ABATACEPT

REACTIONS (1)
  - Pyoderma gangrenosum [Unknown]
